FAERS Safety Report 10217492 (Version 1)
Quarter: 2014Q2

REPORT INFORMATION
  Report Type: Spontaneous
  Country: US (occurrence: US)
  Receive Date: 20140604
  Receipt Date: 20140604
  Transmission Date: 20141212
  Serious: No
  Sender: FDA-Public Use
  Company Number: US-PFIZER INC-2014153692

PATIENT
  Age: 49 Year
  Sex: Female
  Weight: 63.04 kg

DRUGS (5)
  1. CHANTIX [Suspect]
     Indication: SMOKING CESSATION THERAPY
     Dosage: 0.5 MG, 1X/DAY
     Route: 048
     Dates: start: 2007
  2. CHANTIX [Suspect]
     Dosage: UNK
     Route: 048
  3. LASIX [Concomitant]
     Dosage: UNK
  4. DEMADEX [Concomitant]
     Dosage: 20 MG, UNK
  5. PROZAC [Concomitant]
     Dosage: 20 MG, UNK

REACTIONS (1)
  - Drug intolerance [Unknown]
